FAERS Safety Report 7429693-1 (Version None)
Quarter: 2011Q2

REPORT INFORMATION
  Report Type: 
  Country: None (occurrence: None)
  Receive Date: 20110421
  Receipt Date: 20110412
  Transmission Date: 20111010
  Serious: Yes (Other)
  Sender: FDA-Public Use
  Company Number: JP-JNJFOC-20110407588

PATIENT
  Age: 32 Year
  Sex: Female

DRUGS (2)
  1. MUCOSTA [Concomitant]
     Route: 065
  2. CRAVIT [Suspect]
     Indication: PRODUCT USED FOR UNKNOWN INDICATION
     Route: 048

REACTIONS (3)
  - NASAL CONGESTION [None]
  - ANAPHYLACTIC REACTION [None]
  - VISUAL FIELD DEFECT [None]
